FAERS Safety Report 25683232 (Version 2)
Quarter: 2025Q3

REPORT INFORMATION
  Report Type: Report from Study
  Country: US (occurrence: US)
  Receive Date: 20250814
  Receipt Date: 20250825
  Transmission Date: 20251021
  Serious: Yes (Other)
  Sender: ABBVIE
  Company Number: US-ABBVIE-6413886

PATIENT
  Age: 68 Year
  Sex: Male
  Weight: 68 kg

DRUGS (2)
  1. SKYRIZI [Suspect]
     Active Substance: RISANKIZUMAB-RZAA
     Indication: Crohn^s disease
     Dosage: FORM STRENGTH: 360 MILLIGRAM
     Route: 058
     Dates: start: 20241115, end: 202501
  2. SKYRIZI [Suspect]
     Active Substance: RISANKIZUMAB-RZAA
     Dosage: FIRST ADMIN DATE-2025?FORM STRENGTH: 360 MILLIGRAM
     Route: 058

REACTIONS (5)
  - Hernia [Recovering/Resolving]
  - Pain [Not Recovered/Not Resolved]
  - Tinea infection [Recovering/Resolving]
  - Discomfort [Not Recovered/Not Resolved]
  - Scar [Not Recovered/Not Resolved]

NARRATIVE: CASE EVENT DATE: 20250601
